FAERS Safety Report 16375768 (Version 1)
Quarter: 2019Q2

REPORT INFORMATION
  Report Type: Spontaneous
  Country: US (occurrence: US)
  Receive Date: 20190531
  Receipt Date: 20190531
  Transmission Date: 20190711
  Serious: No
  Sender: FDA-Public Use
  Company Number: US-JNJFOC-20190523869

PATIENT
  Sex: Female

DRUGS (5)
  1. DURAGESIC [Concomitant]
     Active Substance: FENTANYL
     Indication: SCOLIOSIS
     Route: 062
  2. DURAGESIC [Concomitant]
     Active Substance: FENTANYL
     Indication: SCOLIOSIS
     Route: 062
  3. TYLENOL [Suspect]
     Active Substance: ACETAMINOPHEN
     Route: 048
  4. TYLENOL [Suspect]
     Active Substance: ACETAMINOPHEN
     Indication: PAIN
     Route: 048
     Dates: start: 2004
  5. DURAGESIC [Concomitant]
     Active Substance: FENTANYL
     Indication: SCOLIOSIS
     Route: 062

REACTIONS (1)
  - Hepatic function abnormal [Recovered/Resolved]

NARRATIVE: CASE EVENT DATE: 2004
